FAERS Safety Report 17258039 (Version 1)
Quarter: 2020Q1

REPORT INFORMATION
  Report Type: Spontaneous
  Country: FR (occurrence: FR)
  Receive Date: 20200110
  Receipt Date: 20200110
  Transmission Date: 20200409
  Serious: Yes (Hospitalization)
  Sender: FDA-Public Use
  Company Number: FR-PFIZER INC-2020010210

PATIENT
  Age: 60 Year
  Sex: Male
  Weight: 93.5 kg

DRUGS (8)
  1. NEBIVOLOL. [Concomitant]
     Active Substance: NEBIVOLOL
     Dosage: 3.75 MG, 1X/DAY
     Route: 048
     Dates: end: 201911
  2. PERINDOPRIL [Concomitant]
     Active Substance: PERINDOPRIL
     Dosage: 2 MG, 1X/DAY
     Route: 048
     Dates: end: 201911
  3. GABAPENTIN. [Suspect]
     Active Substance: GABAPENTIN
     Indication: NEURALGIA
     Dosage: 3000 MG, 1X/DAY
     Route: 048
     Dates: end: 20191121
  4. MORPHINE [Suspect]
     Active Substance: MORPHINE
     Indication: NEURALGIA
     Dosage: 9.12 MG, 1X/DAY
     Route: 037
     Dates: start: 201902
  5. CYMBALTA [Suspect]
     Active Substance: DULOXETINE HYDROCHLORIDE
     Indication: NEURALGIA
     Dosage: 90 MG, 1X/DAY
     Route: 048
     Dates: end: 20191121
  6. ROPIVACAINE. [Suspect]
     Active Substance: ROPIVACAINE HYDROCHLORIDE
     Indication: NEURALGIA
     Dosage: 19.2 MG, 1X/DAY
     Route: 037
     Dates: start: 201902
  7. PRIALT [Suspect]
     Active Substance: ZICONOTIDE ACETATE
     Indication: NEURALGIA
     Dosage: 2.64 UG, 1X/DAY
     Route: 037
     Dates: start: 201902
  8. BACLOFENE [Suspect]
     Active Substance: BACLOFEN
     Indication: NEURALGIA
     Dosage: 70 MG, 1X/DAY
     Route: 048
     Dates: end: 20191121

REACTIONS (2)
  - Confusional state [Recovered/Resolved]
  - Disturbance in attention [Recovered/Resolved]

NARRATIVE: CASE EVENT DATE: 20191120
